FAERS Safety Report 25361129 (Version 1)
Quarter: 2025Q2

REPORT INFORMATION
  Report Type: Spontaneous
  Country: US (occurrence: US)
  Receive Date: 20250527
  Receipt Date: 20250527
  Transmission Date: 20250716
  Serious: Yes (Other)
  Sender: BAUSCH AND LOMB
  Company Number: US-BAUSCH-BL-2025-006493

PATIENT
  Age: 56 Year
  Sex: Male
  Weight: 122.4 kg

DRUGS (7)
  1. LIBRIUM [Suspect]
     Active Substance: CHLORDIAZEPOXIDE HYDROCHLORIDE
     Indication: Pain
     Route: 065
     Dates: start: 202504
  2. LIBRIUM [Suspect]
     Active Substance: CHLORDIAZEPOXIDE HYDROCHLORIDE
     Indication: Product use in unapproved indication
  3. VIVITROL [Suspect]
     Active Substance: NALTREXONE
     Indication: Alcoholism
     Dosage: INTRAMUSC-GUT, QMO
     Route: 065
     Dates: start: 2021
  4. VIVITROL [Suspect]
     Active Substance: NALTREXONE
     Dosage: REINITIATED
     Route: 065
     Dates: start: 202503
  5. MORPHINE [Suspect]
     Active Substance: MORPHINE
     Indication: Hepatic pain
     Route: 065
     Dates: start: 202504
  6. MORPHINE [Suspect]
     Active Substance: MORPHINE
     Indication: Gastrointestinal pain
  7. DILAUDID [Suspect]
     Active Substance: HYDROMORPHONE HYDROCHLORIDE
     Indication: Pain
     Route: 065
     Dates: start: 202504

REACTIONS (4)
  - Oxygen saturation decreased [Unknown]
  - Loss of consciousness [Unknown]
  - Overdose [Unknown]
  - Product use in unapproved indication [Unknown]

NARRATIVE: CASE EVENT DATE: 20250401
